FAERS Safety Report 7876512-5 (Version None)
Quarter: 2011Q4

REPORT INFORMATION
  Report Type: 
  Country: None (occurrence: None)
  Receive Date: 20111031
  Receipt Date: 20111024
  Transmission Date: 20120403
  Serious: Yes (Other)
  Sender: FDA-Public Use
  Company Number: US-ABBOTT-11P-163-0867941-00

PATIENT
  Sex: Male

DRUGS (1)
  1. HUMIRA [Suspect]
     Indication: PSORIASIS
     Dates: start: 20060101

REACTIONS (6)
  - BENIGN NEOPLASM OF SPINAL CORD [None]
  - PSORIASIS [None]
  - BENIGN SALIVARY GLAND NEOPLASM [None]
  - BACK PAIN [None]
  - MUSCLE SPASMS [None]
  - EPENDYMOMA BENIGN [None]
